FAERS Safety Report 4494185-9 (Version None)
Quarter: 2004Q4

REPORT INFORMATION
  Report Type: 
  Country: None (occurrence: None)
  Receive Date: 20041105
  Receipt Date: 20041012
  Transmission Date: 20050328
  Serious: Yes (Hospitalization)
  Sender: FDA-Public Use
  Company Number: JP-ROCHE-383714

PATIENT
  Age: 67 Year
  Sex: Male

DRUGS (5)
  1. PEGASYS [Suspect]
     Indication: HEPATITIS C
     Route: 058
     Dates: start: 20040922
  2. GASTROM [Concomitant]
     Indication: HEPATITIS C
     Route: 048
  3. ZANTAC [Concomitant]
     Route: 048
  4. ADALAT [Concomitant]
     Route: 048
  5. DIOVAN [Concomitant]
     Route: 048

REACTIONS (1)
  - CONVULSION [None]
